FAERS Safety Report 23196856 (Version 10)
Quarter: 2025Q2

REPORT INFORMATION
  Report Type: Spontaneous
  Country: US (occurrence: US)
  Receive Date: 20231117
  Receipt Date: 20250423
  Transmission Date: 20250716
  Serious: Yes (Other)
  Sender: PFIZER
  Company Number: US-PFIZER INC-PV202300033115

PATIENT
  Age: 73 Year
  Sex: Female

DRUGS (2)
  1. IBRANCE [Suspect]
     Active Substance: PALBOCICLIB
     Indication: Breast cancer metastatic
     Route: 048
     Dates: start: 20230109
  2. FEMARA [Concomitant]
     Active Substance: LETROZOLE
     Dates: start: 20230109

REACTIONS (3)
  - Glaucoma [Unknown]
  - Blindness unilateral [Unknown]
  - Malaise [Unknown]
